FAERS Safety Report 12046169 (Version 1)
Quarter: 2016Q1

REPORT INFORMATION
  Report Type: Report from Study
  Country: US (occurrence: US)
  Receive Date: 20160208
  Receipt Date: 20160208
  Transmission Date: 20160526
  Serious: No
  Sender: FDA-Public Use
  Company Number: US-ABBVIE-15P-163-1366668-00

PATIENT
  Age: 30 Year
  Sex: Female

DRUGS (2)
  1. METHOTREXATE [Concomitant]
     Active Substance: METHOTREXATE
     Indication: PRODUCT USED FOR UNKNOWN INDICATION
  2. HUMIRA [Suspect]
     Active Substance: ADALIMUMAB
     Indication: PSORIATIC ARTHROPATHY
     Route: 058
     Dates: start: 20141120, end: 20150310

REACTIONS (3)
  - Upper respiratory tract infection [Recovering/Resolving]
  - Laryngitis [Not Recovered/Not Resolved]
  - Rhinitis allergic [Recovering/Resolving]

NARRATIVE: CASE EVENT DATE: 201503
